FAERS Safety Report 18562341 (Version 1)
Quarter: 2020Q4

REPORT INFORMATION
  Report Type: Spontaneous
  Country: NL (occurrence: NL)
  Receive Date: 20201130
  Receipt Date: 20201130
  Transmission Date: 20210114
  Serious: No
  Sender: FDA-Public Use
  Company Number: NL-LUPIN PHARMACEUTICALS INC.-2020-09564

PATIENT
  Age: 69 Year
  Sex: Female

DRUGS (3)
  1. SILDENAFIL. [Suspect]
     Active Substance: SILDENAFIL
     Indication: PULMONARY HYPERTENSION
     Dosage: 20 MILLIGRAM, TID
     Route: 065
  2. MACITENTAN [Concomitant]
     Active Substance: MACITENTAN
     Indication: PULMONARY HYPERTENSION
     Dosage: 10 MILLIGRAM, QD
     Route: 065
  3. PREDNISONE. [Concomitant]
     Active Substance: PREDNISONE
     Indication: PULMONARY SARCOIDOSIS
     Dosage: UNK (HIGH-DOSAGE PREDNISONE WAS STARTED AT 6 WEEKS)
     Route: 065

REACTIONS (1)
  - Off label use [Unknown]
